FAERS Safety Report 6383269-6 (Version None)
Quarter: 2009Q3

REPORT INFORMATION
  Report Type: 
  Country: None (occurrence: None)
  Receive Date: 20090929
  Receipt Date: 20090921
  Transmission Date: 20100115
  Serious: Yes (Hospitalization)
  Sender: FDA-Public Use
  Company Number: SP02579

PATIENT
  Age: 62 Year
  Sex: Female

DRUGS (6)
  1. COLAZAL [Suspect]
     Indication: CROHN'S DISEASE
     Dosage: ORAL
     Route: 048
     Dates: end: 20090921
  2. APRISO [Suspect]
     Indication: CROHN'S DISEASE
     Dosage: ORAL
     Route: 048
     Dates: start: 20090921
  3. PREDNISONE [Suspect]
     Dosage: (5 MG)
  4. AMLODIPINE BESILATE [Concomitant]
  5. LOVASTATIN [Concomitant]
  6. CARAFATE [Concomitant]

REACTIONS (7)
  - CHEST PAIN [None]
  - CHOLELITHIASIS [None]
  - DRUG INEFFECTIVE [None]
  - DYSPNOEA [None]
  - HEADACHE [None]
  - NECK PAIN [None]
  - POLYP [None]
